FAERS Safety Report 24975640 (Version 11)
Quarter: 2025Q4

REPORT INFORMATION
  Report Type: Report from Study
  Country: US (occurrence: US)
  Receive Date: 20250217
  Receipt Date: 20251222
  Transmission Date: 20260118
  Serious: Yes (Hospitalization, Other)
  Sender: SANDOZ
  Company Number: US-002147023-NVSC2020US101412

PATIENT
  Age: 74 Year
  Sex: Female
  Weight: 44.9 kg

DRUGS (46)
  1. TREPROSTINIL [Suspect]
     Active Substance: TREPROSTINIL
     Indication: Pulmonary arterial hypertension
     Dosage: UNK
  2. TREPROSTINIL [Suspect]
     Active Substance: TREPROSTINIL
     Dosage: 10 MG/ML
  3. TREPROSTINIL [Suspect]
     Active Substance: TREPROSTINIL
     Dosage: UNK
  4. TREPROSTINIL [Suspect]
     Active Substance: TREPROSTINIL
     Dosage: 10 MG/ML CONT
  5. TREPROSTINIL [Suspect]
     Active Substance: TREPROSTINIL
     Dosage: 234 NG/KG/MIN, CONT
  6. TREPROSTINIL [Suspect]
     Active Substance: TREPROSTINIL
     Dosage: 234 NG/KG/MIN, CONT
  7. TREPROSTINIL [Suspect]
     Active Substance: TREPROSTINIL
     Dosage: 234 NG/KG/MIN,1MG/ML, CONT
  8. TREPROSTINIL [Suspect]
     Active Substance: TREPROSTINIL
     Dosage: 234 NG/KG/MIN,1MG/ML, CONT
  9. TREPROSTINIL [Suspect]
     Active Substance: TREPROSTINIL
     Dosage: 234 NG/KG/MIN
  10. TREPROSTINIL [Suspect]
     Active Substance: TREPROSTINIL
     Dosage: UNK; 234 NG/KG/MIN
  11. TREPROSTINIL [Suspect]
     Active Substance: TREPROSTINIL
     Dosage: 250 NG/KG/MIN, CONT
  12. TREPROSTINIL [Suspect]
     Active Substance: TREPROSTINIL
     Dosage: 250 NG/KG/MIN (1MG/ML), CONT
  13. TREPROSTINIL [Suspect]
     Active Substance: TREPROSTINIL
     Dosage: 250 NG/KG/MIN, CONT
  14. TREPROSTINIL [Suspect]
     Active Substance: TREPROSTINIL
     Dosage: 250 NG/KG/MIN, CONT
  15. TREPROSTINIL [Suspect]
     Active Substance: TREPROSTINIL
     Dosage: 250 NG/KG/MIN, CONT
  16. TREPROSTINIL [Suspect]
     Active Substance: TREPROSTINIL
     Dosage: 250 NG/KG/MIN, CONT, STRENGTH: 1MG/ML
  17. TREPROSTINIL [Suspect]
     Active Substance: TREPROSTINIL
     Dosage: 250 NG/KG/MIN CONTINUOUS
  18. APIXABAN [Suspect]
     Active Substance: APIXABAN
     Indication: Product used for unknown indication
     Dosage: UNK
  19. MACITENTAN\TADALAFIL [Suspect]
     Active Substance: MACITENTAN\TADALAFIL
     Indication: Product used for unknown indication
     Dosage: UNK
  20. SILDENAFIL CITRATE [Concomitant]
     Active Substance: SILDENAFIL CITRATE
     Indication: Product used for unknown indication
     Dosage: UNK
  21. SILDENAFIL CITRATE [Concomitant]
     Active Substance: SILDENAFIL CITRATE
     Dosage: UNK
  22. FLOLAN [Concomitant]
     Active Substance: EPOPROSTENOL SODIUM
     Indication: Pulmonary arterial hypertension
     Dosage: 234 NG/KG/MIN
  23. SALONPAS PAIN RELIEF [Concomitant]
     Active Substance: MENTHOL\METHYL SALICYLATE
     Indication: Product used for unknown indication
  24. FUROSEMIDE [Concomitant]
     Active Substance: FUROSEMIDE
     Indication: Product used for unknown indication
     Dosage: UNK
  25. CALCIUM [Concomitant]
     Active Substance: CALCIUM
     Indication: Product used for unknown indication
     Dosage: UNK
  26. BREO ELLIPTA [Concomitant]
     Active Substance: FLUTICASONE FUROATE\VILANTEROL TRIFENATATE
     Indication: Product used for unknown indication
  27. SODIUM CHLORIDE [Concomitant]
     Active Substance: SODIUM CHLORIDE
     Indication: Product used for unknown indication
  28. PANTOPRAZOLE SODIUM [Concomitant]
     Active Substance: PANTOPRAZOLE SODIUM
     Indication: Product used for unknown indication
  29. MUPIROCIN [Concomitant]
     Active Substance: MUPIROCIN
     Indication: Product used for unknown indication
  30. ACETAMINOPHEN\TRAMADOL [Concomitant]
     Active Substance: ACETAMINOPHEN\TRAMADOL
     Indication: Product used for unknown indication
  31. BENADRYL [Concomitant]
     Active Substance: DIPHENHYDRAMINE HYDROCHLORIDE
     Indication: Product used for unknown indication
  32. ALPRAZOLAM [Concomitant]
     Active Substance: ALPRAZOLAM
     Indication: Product used for unknown indication
  33. POTASSIUM CHLORIDE [Concomitant]
     Active Substance: POTASSIUM CHLORIDE
     Indication: Product used for unknown indication
     Dosage: UNK
  34. OXYGEN [Concomitant]
     Active Substance: OXYGEN
     Indication: Product used for unknown indication
  35. IPRATROPIUM BROMIDE [Concomitant]
     Active Substance: IPRATROPIUM BROMIDE
     Indication: Product used for unknown indication
     Dosage: UNK
  36. ATROPINE\DIPHENOXYLATE [Concomitant]
     Active Substance: ATROPINE\DIPHENOXYLATE
     Indication: Product used for unknown indication
     Dosage: UNK
  37. FERROUS SULFATE [Concomitant]
     Active Substance: FERROUS SULFATE
     Indication: Product used for unknown indication
     Dosage: UNK
  38. MELATONIN [Concomitant]
     Active Substance: MELATONIN
     Indication: Product used for unknown indication
  39. TRIAMCINOLONE ACETONIDE [Concomitant]
     Active Substance: TRIAMCINOLONE ACETONIDE
     Indication: Product used for unknown indication
  40. PEPTO-BISMOL [Concomitant]
     Active Substance: BISMUTH SUBSALICYLATE
     Indication: Product used for unknown indication
  41. LORATADINE [Concomitant]
     Active Substance: LORATADINE
     Indication: Product used for unknown indication
     Dosage: UNK
  42. VAGISIL ANTI ITCH ORIGINAL STRENGTH [Concomitant]
     Active Substance: BENZOCAINE\RESORCINOL
     Indication: Product used for unknown indication
  43. ANTACID [Concomitant]
     Active Substance: ALUMINUM HYDROXIDE\CALCIUM CARBONATE\DIMETHICONE\MAGNESIUM HYDROXIDE
     Indication: Product used for unknown indication
     Dosage: UNK
  44. ELIQUIS [Concomitant]
     Active Substance: APIXABAN
     Indication: Product used for unknown indication
     Dosage: UNK
  45. DICYCLOMINE HYDROCHLORIDE [Concomitant]
     Active Substance: DICYCLOMINE HYDROCHLORIDE
     Indication: Product used for unknown indication
     Dosage: UNK
  46. LYSINE [Concomitant]
     Active Substance: LYSINE
     Indication: Product used for unknown indication
     Dosage: UNK

REACTIONS (29)
  - Catheter site haemorrhage [Unknown]
  - Compression fracture [Unknown]
  - Oxygen saturation decreased [Unknown]
  - Uterine cancer [Unknown]
  - Uterine polyp [Unknown]
  - Back pain [Not Recovered/Not Resolved]
  - Musculoskeletal chest pain [Not Recovered/Not Resolved]
  - Pancreatic cyst [Unknown]
  - Malaise [Unknown]
  - Cerebral disorder [Unknown]
  - Ear discomfort [Unknown]
  - Abdominal distension [Unknown]
  - Fall [Unknown]
  - Stress [Unknown]
  - Hypoacusis [Recovering/Resolving]
  - Osteoporosis [Unknown]
  - Headache [Unknown]
  - Diarrhoea [Unknown]
  - Chest pain [Unknown]
  - Asthenia [Unknown]
  - Fatigue [Unknown]
  - Dyspnoea [Unknown]
  - Joint swelling [Unknown]
  - Peripheral swelling [Not Recovered/Not Resolved]
  - Pruritus [Unknown]
  - Arthralgia [Not Recovered/Not Resolved]
  - Dizziness [Not Recovered/Not Resolved]
  - Pain in extremity [Unknown]
  - Pain [Unknown]

NARRATIVE: CASE EVENT DATE: 20220601
